FAERS Safety Report 13668381 (Version 1)
Quarter: 2017Q2

REPORT INFORMATION
  Report Type: Spontaneous
  Country: US (occurrence: US)
  Receive Date: 20170619
  Receipt Date: 20170619
  Transmission Date: 20170830
  Serious: No
  Sender: FDA-Public Use
  Company Number: None

PATIENT
  Age: 32 Year
  Sex: Male
  Weight: 75.6 kg

DRUGS (4)
  1. BUPROPION EXTENDED RELEASE [Concomitant]
     Active Substance: BUPROPION
  2. TECHNETIUM-99M (TC-99M) [Suspect]
     Active Substance: TECHNETIUM TC-99M
     Indication: NUCLEAR MAGNETIC RESONANCE IMAGING ABDOMINAL
     Route: 042
  3. ESCITALOPRAM [Concomitant]
     Active Substance: ESCITALOPRAM OXALATE
  4. TRAZODONE [Concomitant]
     Active Substance: TRAZODONE HYDROCHLORIDE

REACTIONS (1)
  - Headache [None]

NARRATIVE: CASE EVENT DATE: 20170619
